FAERS Safety Report 12418665 (Version 2)
Quarter: 2016Q4

REPORT INFORMATION
  Report Type: Spontaneous
  Country: US (occurrence: US)
  Receive Date: 20160531
  Receipt Date: 20161108
  Transmission Date: 20170207
  Serious: No
  Sender: FDA-Public Use
  Company Number: US-BAYER-2016-103460

PATIENT
  Sex: Male
  Weight: 68.2 kg

DRUGS (6)
  1. ZETIA [Concomitant]
     Active Substance: EZETIMIBE
  2. OMEPRAZOLE. [Concomitant]
     Active Substance: OMEPRAZOLE
  3. CRESTOR [Concomitant]
     Active Substance: ROSUVASTATIN CALCIUM
  4. MIRALAX [Suspect]
     Active Substance: POLYETHYLENE GLYCOL 3350
     Indication: CONSTIPATION
     Dosage: 1 DF, QD, 8-10 YEARS
     Route: 048
  5. BAYER LOW DOSE [Suspect]
     Active Substance: ASPIRIN
     Indication: ISCHAEMIC HEART DISEASE PROPHYLAXIS
     Dosage: UNK
  6. CHOLEST-OFF [Concomitant]
     Active Substance: DIETARY SUPPLEMENT

REACTIONS (2)
  - Product use issue [None]
  - Off label use [None]
